FAERS Safety Report 12244442 (Version 1)
Quarter: 2016Q2

REPORT INFORMATION
  Report Type: Spontaneous
  Country: US (occurrence: US)
  Receive Date: 20160407
  Receipt Date: 20160407
  Transmission Date: 20160815
  Serious: No
  Sender: FDA-Public Use
  Company Number: US-ASTRAZENECA-2016SE36055

PATIENT
  Sex: Female

DRUGS (1)
  1. DALIRESP [Suspect]
     Active Substance: ROFLUMILAST
     Route: 048

REACTIONS (9)
  - Anaemia [Unknown]
  - Drug intolerance [Unknown]
  - Haemorrhage [Unknown]
  - Malaise [Unknown]
  - Gastrointestinal disorder [Unknown]
  - Weight decreased [Unknown]
  - Adverse event [Unknown]
  - Fatigue [Unknown]
  - Activities of daily living impaired [Unknown]
